FAERS Safety Report 9175709 (Version 5)
Quarter: 2014Q1

REPORT INFORMATION
  Report Type: Report from Study
  Country: BR (occurrence: BR)
  Receive Date: 20130320
  Receipt Date: 20140123
  Transmission Date: 20141002
  Serious: Yes (Life-Threatening, Hospitalization)
  Sender: FDA-Public Use
  Company Number: PHHY2013BR026953

PATIENT
  Age: 85 Year
  Sex: Female
  Weight: 65 kg

DRUGS (7)
  1. TEGRETOL CR [Suspect]
     Indication: TRIGEMINAL NEURALGIA
     Dosage: 200 MG (IN THE MORNING AND AT NIGHT), BID
  2. FORASEQ [Suspect]
     Indication: DYSPNOEA
     Dosage: UNK (EVERY TWELVE HOURS AND EVERY 4 HOURS), UNK
  3. OMEPRAZOLE [Suspect]
     Dosage: UNK UKN, UNK
  4. CARVEDILOL [Suspect]
     Dosage: UNK UKN, UNK
  5. RENITEC [Suspect]
     Dosage: UNK UKN, UNK
  6. PREDNISONE [Suspect]
     Dosage: UNK UKN, UNK
  7. BROMOPRIDE [Suspect]
     Dosage: UNK UKN, UNK

REACTIONS (6)
  - Pulmonary embolism [Not Recovered/Not Resolved]
  - Pleural effusion [Not Recovered/Not Resolved]
  - Malaise [Not Recovered/Not Resolved]
  - Dyspnoea [Not Recovered/Not Resolved]
  - Pain [Not Recovered/Not Resolved]
  - Drug ineffective [Unknown]
